FAERS Safety Report 8853095 (Version 4)
Quarter: 2014Q1

REPORT INFORMATION
  Report Type: Spontaneous
  Country: US (occurrence: US)
  Receive Date: 20121022
  Receipt Date: 20140120
  Transmission Date: 20141002
  Serious: Yes (Death, Life-Threatening, Hospitalization, Disabling, Other)
  Sender: FDA-Public Use
  Company Number: US-009507513-1210USA008955

PATIENT
  Sex: Female
  Weight: 136.5 kg

DRUGS (3)
  1. JANUVIA [Suspect]
     Indication: TYPE 2 DIABETES MELLITUS
     Dosage: 100 MG, QD
     Route: 048
     Dates: start: 20110421, end: 20110713
  2. METFORMIN [Concomitant]
     Indication: TYPE 2 DIABETES MELLITUS
     Dosage: UNK
  3. AMARYL [Concomitant]
     Indication: TYPE 2 DIABETES MELLITUS
     Dosage: UNK

REACTIONS (32)
  - Adenocarcinoma pancreas [Fatal]
  - Renal failure [Unknown]
  - Pancreatitis [Unknown]
  - Hepatic cirrhosis [Unknown]
  - Blood creatinine increased [Unknown]
  - Pulmonary mass [Unknown]
  - Hypertension [Unknown]
  - Anaemia [Unknown]
  - Hypoglycaemia [Unknown]
  - Metabolic acidosis [Unknown]
  - Hypotension [Unknown]
  - Bacteriuria [Unknown]
  - Dehydration [Unknown]
  - Catheter placement [Unknown]
  - Treatment failure [Unknown]
  - Bile duct stent insertion [Unknown]
  - Drain removal [Unknown]
  - Catheter placement [Unknown]
  - Fluid overload [Unknown]
  - Generalised oedema [Unknown]
  - Malnutrition [Unknown]
  - Respiratory failure [Unknown]
  - Aspiration pleural cavity [Unknown]
  - Pleural effusion [Unknown]
  - Major depression [Unknown]
  - Pneumonia [Unknown]
  - Asthenia [Unknown]
  - Anosognosia [Unknown]
  - Social problem [Unknown]
  - Hepatitis [Unknown]
  - Asthenia [Fatal]
  - Malnutrition [Fatal]
